FAERS Safety Report 9409388 (Version 1)
Quarter: 2013Q3

REPORT INFORMATION
  Report Type: Report from Study
  Country: DE (occurrence: DE)
  Receive Date: 20130719
  Receipt Date: 20130719
  Transmission Date: 20140515
  Serious: Yes (Hospitalization)
  Sender: FDA-Public Use
  Company Number: DE-ROCHE-1247123

PATIENT
  Age: 63 Year
  Sex: Female
  Weight: 79 kg

DRUGS (9)
  1. PERTUZUMAB [Suspect]
     Indication: BREAST CANCER
     Dosage: DATE OF LAST DOSE PRIOR TO SAE: 31/MAY/2013;  420 MG.
     Route: 042
     Dates: start: 20130301
  2. TRASTUZUMAB [Suspect]
     Indication: BREAST CANCER
     Dosage: DATE OF LAST DOSE PRIOR TO SAE: 31/MAY/2013;  6 MG/KG
     Route: 042
     Dates: start: 20130301
  3. PACLITAXEL [Suspect]
     Indication: BREAST CANCER
     Dosage: DATE OF LAST DOSE PRIOR TO SAE: 24/MAY/2013;  80 MG/M2
     Route: 042
     Dates: start: 20130301
  4. EPIRUBICIN [Suspect]
     Indication: BREAST CANCER
     Dosage: DATE OF LAST DOSE PRIOR TO SAE: 31/MAY/2013;  90 MG/M2
     Route: 042
     Dates: start: 20130531
  5. CYCLOPHOSPHAMIDE [Suspect]
     Indication: BREAST CANCER
     Dosage: DATE OF LAST DOSE PRIOR TO SAE: 31/MAY/2013;  600 MG/M2
     Route: 042
     Dates: start: 20130531
  6. BERLTHYROX [Concomitant]
     Route: 065
     Dates: start: 2003
  7. ENALAPRIL [Concomitant]
     Route: 065
     Dates: start: 2008
  8. AMLODIPIN [Concomitant]
     Route: 065
     Dates: start: 2008
  9. CARVEDILOL [Concomitant]
     Route: 065
     Dates: start: 2008

REACTIONS (1)
  - Abdominal pain [Recovered/Resolved]
